FAERS Safety Report 12134198 (Version 1)
Quarter: 2016Q1

REPORT INFORMATION
  Report Type: Spontaneous
  Country: US (occurrence: US)
  Receive Date: 20160301
  Receipt Date: 20160301
  Transmission Date: 20160526
  Serious: No
  Sender: FDA-Public Use
  Company Number: US-GLAXOSMITHKLINE-US2016026495

PATIENT
  Age: 82 Year
  Sex: Male

DRUGS (9)
  1. ALLOPURINOL. [Concomitant]
     Active Substance: ALLOPURINOL
  2. ASPIRIN (BABY) [Concomitant]
     Active Substance: ASPIRIN
  3. LOVASTATIN. [Concomitant]
     Active Substance: LOVASTATIN
  4. BENADRYL [Concomitant]
     Active Substance: DIPHENHYDRAMINE HYDROCHLORIDE
  5. LISINOPRIL. [Concomitant]
     Active Substance: LISINOPRIL
  6. WARFARIN [Concomitant]
     Active Substance: WARFARIN
  7. ISOSORBIDE MN [Concomitant]
     Active Substance: ISOSORBIDE MONONITRATE
  8. METOPROLOL. [Concomitant]
     Active Substance: METOPROLOL
  9. ANORO ELLIPTA [Suspect]
     Active Substance: UMECLIDINIUM BROMIDE\VILANTEROL TRIFENATATE
     Indication: DYSPNOEA
     Dosage: 1 PUFF(S), QD
     Route: 055
     Dates: start: 20160124

REACTIONS (2)
  - Rash [Not Recovered/Not Resolved]
  - Pruritus [Not Recovered/Not Resolved]

NARRATIVE: CASE EVENT DATE: 20160203
